FAERS Safety Report 16812602 (Version 1)
Quarter: 2019Q3

REPORT INFORMATION
  Report Type: Spontaneous
  Country: CA (occurrence: CA)
  Receive Date: 20190916
  Receipt Date: 20190916
  Transmission Date: 20191005
  Serious: Yes (Other)
  Sender: FDA-Public Use
  Company Number: CA-TEVA-2019-CA-1108036

PATIENT
  Age: 37 Year
  Sex: Male

DRUGS (4)
  1. PAROXETINE HYDROCHLORIDE. [Suspect]
     Active Substance: PAROXETINE HYDROCHLORIDE
     Indication: AGORAPHOBIA
     Dosage: 10 MILLIGRAM DAILY;
  2. FLUOXETINE HYDROCHLORIDE. [Suspect]
     Active Substance: FLUOXETINE HYDROCHLORIDE
     Indication: PANIC DISORDER
     Dosage: 20 MILLIGRAM DAILY;
  3. PAROXETINE HYDROCHLORIDE. [Suspect]
     Active Substance: PAROXETINE HYDROCHLORIDE
     Indication: PANIC DISORDER
  4. FLUOXETINE HYDROCHLORIDE. [Suspect]
     Active Substance: FLUOXETINE HYDROCHLORIDE
     Indication: AGORAPHOBIA
     Dosage: 10 MILLIGRAM DAILY;

REACTIONS (2)
  - Drug withdrawal syndrome [Recovering/Resolving]
  - Cyclothymic disorder [Recovering/Resolving]
